FAERS Safety Report 23140247 (Version 1)
Quarter: 2023Q4

REPORT INFORMATION
  Report Type: Spontaneous
  Country: US (occurrence: US)
  Receive Date: 20231102
  Receipt Date: 20231102
  Transmission Date: 20240110
  Serious: Yes (Hospitalization, Other)
  Sender: FDA-Public Use
  Company Number: US-ABBVIE-5475172

PATIENT
  Age: 69 Year
  Sex: Female

DRUGS (30)
  1. NIASPAN [Suspect]
     Active Substance: NIACIN
     Indication: Product used for unknown indication
     Dosage: EXTENDED RELEASE
     Route: 048
  2. PFIZER-BIONTECH COVID-19 VACCINE [Suspect]
     Active Substance: TOZINAMERAN
     Indication: COVID-19
     Route: 030
     Dates: start: 20220909, end: 20220909
  3. PFIZER-BIONTECH COVID-19 VACCINE [Suspect]
     Active Substance: TOZINAMERAN
     Indication: COVID-19
     Route: 030
     Dates: start: 20230921, end: 20230921
  4. MODERNA COVID-19 VACCINE [Suspect]
     Active Substance: ELASOMERAN
     Indication: COVID-19
     Route: 030
     Dates: start: 20210403, end: 20210403
  5. MODERNA COVID-19 VACCINE [Suspect]
     Active Substance: ELASOMERAN
     Indication: COVID-19
     Route: 030
     Dates: start: 20210104, end: 20210104
  6. MODERNA COVID-19 VACCINE [Suspect]
     Active Substance: ELASOMERAN
     Indication: COVID-19
     Route: 030
     Dates: start: 20211025, end: 20211025
  7. MODERNA COVID-19 VACCINE [Suspect]
     Active Substance: ELASOMERAN
     Indication: COVID-19
     Route: 030
     Dates: start: 20220426, end: 20220426
  8. PAXLOVID [Suspect]
     Active Substance: NIRMATRELVIR\RITONAVIR
     Indication: Product used for unknown indication
     Route: 065
  9. INFLUENZA VIRUS VACCINE [Suspect]
     Active Substance: INFLUENZA VIRUS VACCINE
     Indication: Influenza
     Route: 030
     Dates: start: 20220909
  10. DIGOXIN [Concomitant]
     Active Substance: DIGOXIN
     Indication: Product used for unknown indication
     Dosage: 250 MCG
     Route: 048
  11. AMLODIPINE BESYLATE [Concomitant]
     Active Substance: AMLODIPINE BESYLATE
     Indication: Product used for unknown indication
     Route: 048
  12. SPIRONOLACTONE [Concomitant]
     Active Substance: SPIRONOLACTONE
     Indication: Product used for unknown indication
     Route: 048
  13. ATORVASTATIN [Concomitant]
     Active Substance: ATORVASTATIN
     Indication: Product used for unknown indication
     Route: 048
  14. PROAIR HFA [Concomitant]
     Active Substance: ALBUTEROL SULFATE
     Indication: Product used for unknown indication
     Dosage: INHALED FOUR TIMES A DAY AS NEEDED, DOSE: 90 MCG
     Route: 050
  15. WARFARIN [Concomitant]
     Active Substance: WARFARIN
     Indication: Product used for unknown indication
     Route: 048
  16. WARFARIN [Concomitant]
     Active Substance: WARFARIN
     Indication: Product used for unknown indication
     Route: 048
  17. TRESIBA [Concomitant]
     Active Substance: INSULIN DEGLUDEC
     Indication: Product used for unknown indication
     Dosage: 35 UNIT
     Route: 058
  18. NOVOLIN R [Concomitant]
     Active Substance: INSULIN HUMAN
     Indication: Product used for unknown indication
     Dosage: 30 UNIT
  19. METOPROLOL TARTRATE [Concomitant]
     Active Substance: METOPROLOL TARTRATE
     Indication: Product used for unknown indication
     Route: 048
  20. METFORMIN [Concomitant]
     Active Substance: METFORMIN HYDROCHLORIDE
     Indication: Product used for unknown indication
     Route: 048
  21. SODIUM CHLORIDE [Concomitant]
     Active Substance: SODIUM CHLORIDE
     Indication: Product used for unknown indication
     Dosage: AS NEEDED
     Route: 042
  22. CIPROFLOXACIN [Concomitant]
     Active Substance: CIPROFLOXACIN
     Indication: Product used for unknown indication
     Route: 042
  23. INSULIN GLARGINE [Concomitant]
     Active Substance: INSULIN GLARGINE
     Indication: Product used for unknown indication
     Dosage: AT BED TIMES, DOSE: 20 UNITS
     Route: 058
  24. INSULIN LISPRO [Concomitant]
     Active Substance: INSULIN LISPRO
     Indication: Product used for unknown indication
     Route: 058
  25. FLAGYL [Concomitant]
     Active Substance: METRONIDAZOLE\METRONIDAZOLE HYDROCHLORIDE
     Indication: Product used for unknown indication
     Route: 042
  26. ALBUTEROL [Concomitant]
     Active Substance: ALBUTEROL
     Indication: Product used for unknown indication
     Dosage: DOSE: 90 MCG
     Route: 065
  27. DEXTROSE [Concomitant]
     Active Substance: DEXTROSE\DEXTROSE MONOHYDRATE
     Indication: Product used for unknown indication
     Route: 042
  28. GLUCAGON [Concomitant]
     Active Substance: GLUCAGON\GLUCAGON HYDROCHLORIDE\WATER
     Indication: Product used for unknown indication
     Route: 030
  29. HYDROMORPHONE [Concomitant]
     Active Substance: HYDROMORPHONE
     Indication: Product used for unknown indication
     Route: 042
  30. HYDROMORPHONE [Concomitant]
     Active Substance: HYDROMORPHONE
     Indication: Product used for unknown indication
     Route: 042

REACTIONS (45)
  - Diverticular perforation [Unknown]
  - Diverticulitis [Unknown]
  - SARS-CoV-2 test positive [Recovering/Resolving]
  - Obstructive sleep apnoea syndrome [Unknown]
  - Fatigue [Unknown]
  - Spinal pain [Unknown]
  - Oedema [Unknown]
  - Abscess [Unknown]
  - Syncope [Unknown]
  - Balance disorder [Unknown]
  - Dry skin [Unknown]
  - Atrial fibrillation [Unknown]
  - Leukocytosis [Unknown]
  - Intestinal resection [Unknown]
  - Night sweats [Unknown]
  - Hypertension [Unknown]
  - Colectomy [Unknown]
  - Chronic obstructive pulmonary disease [Unknown]
  - Cardiac failure chronic [Unknown]
  - Asthma [Unknown]
  - Hiatus hernia [Unknown]
  - Intestinal perforation [Unknown]
  - Type 2 diabetes mellitus [Unknown]
  - Arrhythmia [Unknown]
  - Cholelithiasis [Unknown]
  - Swelling [Unknown]
  - Colostomy [Unknown]
  - Cardiomegaly [Unknown]
  - Arthralgia [Unknown]
  - Skin warm [Unknown]
  - White blood cell count increased [Unknown]
  - Red blood cell count increased [Unknown]
  - Mean cell haemoglobin concentration decreased [Unknown]
  - Red cell distribution width increased [Unknown]
  - Neutrophil count increased [Unknown]
  - Lymphocyte count decreased [Unknown]
  - Prothrombin time prolonged [Unknown]
  - International normalised ratio increased [Unknown]
  - Blood glucose increased [Unknown]
  - Blood sodium decreased [Unknown]
  - Blood chloride decreased [Unknown]
  - Glomerular filtration rate abnormal [Unknown]
  - Small intestinal obstruction [Unknown]
  - Pelvic abscess [Unknown]
  - Pneumoperitoneum [Unknown]

NARRATIVE: CASE EVENT DATE: 20230522
